FAERS Safety Report 16075214 (Version 1)
Quarter: 2019Q1

REPORT INFORMATION
  Report Type: Spontaneous
  Country: ES (occurrence: ES)
  Receive Date: 20190315
  Receipt Date: 20190315
  Transmission Date: 20190418
  Serious: Yes (Other)
  Sender: FDA-Public Use
  Company Number: ES-TEVA-2019-ES-1023471

PATIENT
  Age: 79 Year
  Sex: Female

DRUGS (6)
  1. BISOPROLOL (2328A) [Concomitant]
     Active Substance: BISOPROLOL
     Indication: ATRIAL FIBRILLATION
     Dosage: 2.5 MG
  2. GABAPENTINA (2641A) [Suspect]
     Active Substance: GABAPENTIN
     Dosage: 300 MG
     Dates: start: 20121111, end: 20130213
  3. BISOPROLOL (2328A) [Concomitant]
     Active Substance: BISOPROLOL
     Dates: start: 20121213
  4. FUROSEMIDA (1615A) [Concomitant]
     Active Substance: FUROSEMIDE
     Indication: CARDIAC FAILURE
     Dosage: 40 MG
     Dates: start: 20121213
  5. DRONEDARONA (8350A) [Concomitant]
     Dates: start: 201212
  6. LAMOTRIGINA (2579A) [Suspect]
     Active Substance: LAMOTRIGINE
     Indication: PARTIAL SEIZURES
     Dosage: 75 MG
     Dates: start: 20130123

REACTIONS (1)
  - Hepatitis acute [Unknown]

NARRATIVE: CASE EVENT DATE: 20130213
